FAERS Safety Report 10227630 (Version 2)
Quarter: 2014Q2

REPORT INFORMATION
  Report Type: Spontaneous
  Country: JP (occurrence: JP)
  Receive Date: 20140610
  Receipt Date: 20140630
  Transmission Date: 20141212
  Serious: Yes (Death)
  Sender: FDA-Public Use
  Company Number: JP-SA-2014SA069965

PATIENT
  Age: 71 Year
  Sex: Male
  Weight: 69.3 kg

DRUGS (11)
  1. TAXOTERE [Suspect]
     Indication: PROSTATE CANCER
     Dosage: FREQUENCY EVERY 4 WEEKS
     Route: 042
     Dates: start: 20140207
  2. TAXOTERE [Suspect]
     Indication: PROSTATE CANCER
     Dosage: FREQUENCY EVERY 4 WEEKS
     Route: 042
     Dates: start: 20140307
  3. TAXOTERE [Suspect]
     Indication: PROSTATE CANCER
     Dosage: FREQUENCY EVERY 4 WEEKS
     Route: 042
     Dates: start: 20140403, end: 20140403
  4. DECADRON [Concomitant]
     Indication: PROSTATE CANCER
     Route: 042
     Dates: start: 20140207, end: 20140403
  5. ESTRACYT [Concomitant]
     Indication: PROSTATE CANCER
     Route: 048
     Dates: start: 20130215, end: 20140508
  6. TAMSULOSIN [Concomitant]
     Indication: BENIGN PROSTATIC HYPERPLASIA
     Route: 048
     Dates: start: 20101025, end: 20140508
  7. BAYASPIRIN [Concomitant]
     Indication: THROMBOSIS PROPHYLAXIS
     Route: 048
     Dates: start: 20130215, end: 20140508
  8. GASTER [Concomitant]
     Indication: GASTRIC ULCER
     Route: 048
     Dates: start: 20130215, end: 20140508
  9. NU-LOTAN [Concomitant]
     Route: 048
     Dates: end: 20140508
  10. ADALAT CR [Concomitant]
     Route: 048
     Dates: end: 20140508
  11. LIPITOR [Concomitant]
     Route: 048
     Dates: end: 20140508

REACTIONS (5)
  - Lung disorder [Fatal]
  - Pleural effusion [Fatal]
  - Dyspnoea [Fatal]
  - Cough [Fatal]
  - Tachypnoea [Fatal]
